FAERS Safety Report 5969692-X (Version None)
Quarter: 2008Q4

REPORT INFORMATION
  Report Type: 
  Country: None (occurrence: None)
  Receive Date: 20081126
  Receipt Date: 20080917
  Transmission Date: 20090506
  Serious: No
  Sender: FDA-Public Use
  Company Number: US-ABBOTT-08P-163-0476884-00

PATIENT
  Sex: Female
  Weight: 82.628 kg

DRUGS (8)
  1. SIMCOR [Suspect]
     Indication: BLOOD CHOLESTEROL INCREASED
  2. LEVOTHYROXINE SODIUM [Concomitant]
     Indication: DRUG USE FOR UNKNOWN INDICATION
     Dosage: 13 MCG DAILY
     Route: 048
     Dates: start: 19920101
  3. ESOMEPRAZOLE MAGNESIUM [Concomitant]
     Indication: GASTROOESOPHAGEAL REFLUX DISEASE
     Route: 048
     Dates: start: 19980101
  4. ESTRADIOL [Concomitant]
     Indication: MENOPAUSE
     Dosage: 2 MG DAILY
     Route: 048
     Dates: start: 19910101
  5. TRAZODONE HCL [Concomitant]
     Indication: INSOMNIA
     Dosage: 100 MG DAILY
     Route: 048
     Dates: start: 19920101
  6. ESCITALOPRAM OXALATE [Concomitant]
     Indication: DEPRESSION
     Dosage: 10 MG DAILY
     Route: 048
     Dates: start: 20020101
  7. CELECOXIB [Concomitant]
     Indication: FIBROMYALGIA
     Dosage: 200 MG DAILY
     Route: 048
     Dates: start: 20020101
  8. SIMVASTATIN [Concomitant]
     Indication: BLOOD TRIGLYCERIDES INCREASED
     Dosage: 40 MG DAILY
     Route: 048
     Dates: start: 19980101

REACTIONS (1)
  - ARTHRALGIA [None]
